FAERS Safety Report 4877977-3 (Version None)
Quarter: 2006Q1

REPORT INFORMATION
  Report Type: 
  Country: None (occurrence: None)
  Receive Date: 20060110
  Receipt Date: 20051230
  Transmission Date: 20060701
  Serious: Yes (Other)
  Sender: FDA-Public Use
  Company Number: 2005164114

PATIENT
  Age: 68 Year
  Sex: Female
  Weight: 66.2252 kg

DRUGS (19)
  1. CELEBREX [Suspect]
     Indication: OSTEOARTHRITIS
     Dosage: 100 MG (100 MG, 1 IN 1 D), ORAL
     Route: 048
     Dates: start: 20051202
  2. CELEBREX [Suspect]
     Indication: RHEUMATOID ARTHRITIS
     Dosage: 100 MG (100 MG, 1 IN 1 D), ORAL
     Route: 048
     Dates: start: 20051202
  3. ISOPTIN SR [Concomitant]
  4. THYROID TAB [Concomitant]
  5. MONTELUKAST SODIUM (MONTELUKAST SODIUM) [Concomitant]
  6. COMBIVENT [Concomitant]
  7. DYAZIDE [Concomitant]
  8. MAXZIDE [Concomitant]
  9. ALLERGY MEDICATION (ALLERGY MEDICATION) [Concomitant]
  10. PREMARIN [Concomitant]
  11. CARAFATE [Concomitant]
  12. PEPCID [Concomitant]
  13. MUCINEX (GUAIFENESIN) [Concomitant]
  14. VITAMIN B12 [Concomitant]
  15. MULTIVITAMIN [Concomitant]
  16. IRON (IRON) [Concomitant]
  17. ZYLOPRIM [Concomitant]
  18. ASPIRIN [Concomitant]
  19. LIPITOR [Concomitant]

REACTIONS (10)
  - ABDOMINAL PAIN [None]
  - ASTHMA [None]
  - BLOOD PRESSURE INCREASED [None]
  - CONDITION AGGRAVATED [None]
  - ERYTHEMA [None]
  - FEELING HOT [None]
  - FLUSHING [None]
  - HEADACHE [None]
  - HEART RATE INCREASED [None]
  - PALPITATIONS [None]
